FAERS Safety Report 10175004 (Version 1)
Quarter: 2014Q2

REPORT INFORMATION
  Report Type: Report from Study
  Country: DE (occurrence: DE)
  Receive Date: 20140515
  Receipt Date: 20140515
  Transmission Date: 20141212
  Serious: Yes (Death)
  Sender: FDA-Public Use
  Company Number: GXKR2014DE001891

PATIENT
  Age: 60 Year
  Sex: Male
  Weight: 65 kg

DRUGS (3)
  1. DOCETAXEL NC [Suspect]
     Indication: PROSTATE CANCER
     Dosage: 75 MG/M2, UNK
     Route: 042
     Dates: start: 20130204, end: 20131118
  2. DEXAMETHASONE [Concomitant]
     Dosage: 8 MG, UNK (EVERY THREE WEEKS)
     Route: 042
     Dates: start: 20120917, end: 20131118
  3. NAVOBAN [Concomitant]
     Dosage: 2 MG, UNK (EVERY THREE WEEKS)
     Route: 042
     Dates: start: 20120917, end: 20131118

REACTIONS (1)
  - Death [Fatal]
